FAERS Safety Report 12310463 (Version 1)
Quarter: 2016Q2

REPORT INFORMATION
  Report Type: Report from Study
  Country: US (occurrence: US)
  Receive Date: 20160427
  Receipt Date: 20160427
  Transmission Date: 20160815
  Serious: Yes (Death, Hospitalization, Other)
  Sender: FDA-Public Use
  Company Number: US-BAYER-2016-050942

PATIENT
  Age: 65 Year
  Sex: Female

DRUGS (9)
  1. COLCHICINE. [Concomitant]
     Active Substance: COLCHICINE
  2. ATENOLOL. [Concomitant]
     Active Substance: ATENOLOL
  3. ADEMPAS [Suspect]
     Active Substance: RIOCIGUAT
     Indication: PULMONARY ARTERIAL HYPERTENSION
     Dosage: UNK
     Route: 048
     Dates: start: 20160308
  4. OPSUMIT [Concomitant]
     Active Substance: MACITENTAN
  5. LOSARTAN. [Concomitant]
     Active Substance: LOSARTAN
  6. ALEVE [Concomitant]
     Active Substance: NAPROXEN SODIUM
  7. GLIPIZIDE. [Concomitant]
     Active Substance: GLIPIZIDE
  8. ADEMPAS [Suspect]
     Active Substance: RIOCIGUAT
     Indication: PULMONARY ARTERIAL HYPERTENSION
     Dosage: 1 MG, TID
     Route: 048
  9. CELEBREX [Concomitant]
     Active Substance: CELECOXIB

REACTIONS (7)
  - Dyspepsia [None]
  - Internal haemorrhage [None]
  - Tremor [None]
  - Vomiting [None]
  - Haematochezia [None]
  - Pneumonia aspiration [None]
  - Adverse drug reaction [Fatal]

NARRATIVE: CASE EVENT DATE: 201603
